FAERS Safety Report 4283936-4 (Version None)
Quarter: 2004Q1

REPORT INFORMATION
  Report Type: 
  Country: None (occurrence: None)
  Receive Date: 20040115
  Receipt Date: 20030618
  Transmission Date: 20041129
  Serious: Yes (Other)
  Sender: FDA-Public Use
  Company Number: NSADSS2003024972

PATIENT
  Age: 67 Year
  Sex: Female

DRUGS (7)
  1. DOXIL [Suspect]
     Indication: SARCOMA
     Dosage: CUMULATIVE DOSE OF 267 MG
     Dates: start: 20020201, end: 20020501
  2. TIAZAC [Concomitant]
  3. THEOPHYLLINE [Concomitant]
  4. ALBUTEROL INHALER (SALBUTAMOL) [Concomitant]
  5. AZMACORT [Concomitant]
  6. RANITIDINE [Concomitant]
  7. PREMARIN [Concomitant]

REACTIONS (2)
  - EJECTION FRACTION DECREASED [None]
  - OEDEMA PERIPHERAL [None]
